FAERS Safety Report 22659469 (Version 1)
Quarter: 2023Q2

REPORT INFORMATION
  Report Type: Spontaneous
  Country: IN (occurrence: IN)
  Receive Date: 20230630
  Receipt Date: 20230630
  Transmission Date: 20230722
  Serious: Yes (Hospitalization)
  Sender: FDA-Public Use
  Company Number: IN-drreddys-LIT/IND/23/0168859

PATIENT
  Age: 60 Year
  Sex: Male

DRUGS (1)
  1. PEMETREXED [Suspect]
     Active Substance: PEMETREXED
     Indication: Non-small cell lung cancer stage IV
     Dosage: 4 CYCLES

REACTIONS (5)
  - Lacrimation increased [Recovering/Resolving]
  - Condition aggravated [Recovering/Resolving]
  - Dacryostenosis acquired [Recovering/Resolving]
  - Dacryostenosis acquired [Recovering/Resolving]
  - Loss of personal independence in daily activities [Recovering/Resolving]
